FAERS Safety Report 17066269 (Version 2)
Quarter: 2019Q4

REPORT INFORMATION
  Report Type: Report from Study
  Country: DE (occurrence: DE)
  Receive Date: 20191122
  Receipt Date: 20191219
  Transmission Date: 20200122
  Serious: Yes (Congenital Anomaly, Other)
  Sender: FDA-Public Use
  Company Number: DE-MYLANLABS-2019M1112732

PATIENT
  Age: 12 Month
  Sex: Male
  Weight: 3 kg

DRUGS (3)
  1. LEVETIRACETAM. [Suspect]
     Active Substance: LEVETIRACETAM
     Indication: PRODUCT USED FOR UNKNOWN INDICATION
     Dosage: 2000 MILLIGRAM, QD
     Route: 064
     Dates: start: 20020331
  2. LAMOTRIGINE. [Concomitant]
     Active Substance: LAMOTRIGINE
     Dosage: 150 MILLIGRAM, QD
     Dates: start: 19991118
  3. VALPROIC ACID. [Concomitant]
     Active Substance: VALPROIC ACID
     Dosage: 1300 MILLIGRAM, QD
     Dates: start: 1992

REACTIONS (2)
  - Foetal exposure during pregnancy [Recovered/Resolved]
  - Hypospadias [Unknown]

NARRATIVE: CASE EVENT DATE: 2005
